FAERS Safety Report 20590960 (Version 1)
Quarter: 2022Q1

REPORT INFORMATION
  Report Type: Spontaneous
  Country: US (occurrence: None)
  Receive Date: 20220314
  Receipt Date: 20220314
  Transmission Date: 20220424
  Serious: Yes (Other)
  Sender: FDA-Public Use
  Company Number: None

PATIENT
  Age: 37 Year
  Sex: Female

DRUGS (1)
  1. FINACEA FOAM [Suspect]
     Active Substance: AZELAIC ACID
     Indication: Dermatitis
     Dosage: FREQUENCY : TWICE A DAY;?
     Route: 061
     Dates: start: 20220221, end: 20220314

REACTIONS (2)
  - Dizziness [None]
  - Vision blurred [None]

NARRATIVE: CASE EVENT DATE: 20220309
